FAERS Safety Report 8365814-4 (Version None)
Quarter: 2012Q2

REPORT INFORMATION
  Report Type: 
  Country: None (occurrence: None)
  Receive Date: 20120517
  Receipt Date: 20120503
  Transmission Date: 20120825
  Serious: Yes (Death, Other)
  Sender: FDA-Public Use
  Company Number: GB-RANBAXY-2012R1-53665

PATIENT
  Age: 35 Year
  Sex: Female

DRUGS (2)
  1. VALPROIC ACID [Concomitant]
     Indication: EPILEPSY
     Dosage: 200 MG, TID
     Route: 048
     Dates: start: 19970101
  2. TOPIRAMATE [Suspect]
     Indication: CONVULSION
     Dosage: 100 MG, BID
     Route: 048
     Dates: start: 20120211, end: 20120201

REACTIONS (2)
  - CONVULSION [None]
  - DRUG INEFFECTIVE [None]
